FAERS Safety Report 24687544 (Version 1)
Quarter: 2024Q4

REPORT INFORMATION
  Report Type: Spontaneous
  Country: US (occurrence: None)
  Receive Date: 20241202
  Receipt Date: 20241202
  Transmission Date: 20250114
  Serious: Yes (Other)
  Sender: Public
  Company Number: None

PATIENT
  Age: 36 Year
  Sex: Female
  Weight: 154.8 kg

DRUGS (5)
  1. MONTELUKAST [Suspect]
     Active Substance: MONTELUKAST
     Indication: Pneumonitis
     Dosage: OTHER QUANTITY : 30 TABLET(S);?OTHER FREQUENCY : I TOOK AS NEEDED;?
     Route: 048
     Dates: start: 20200901, end: 20240724
  2. ALEVE [Concomitant]
     Active Substance: NAPROXEN SODIUM
  3. UNSPECIFIED INGREDIENT [Concomitant]
     Active Substance: UNSPECIFIED INGREDIENT
  4. One a day woman^s daily vitamins [Concomitant]
  5. medial marijuana [Concomitant]

REACTIONS (15)
  - Homicidal ideation [None]
  - Depression [None]
  - Hallucination [None]
  - Psychotic disorder [None]
  - Fatigue [None]
  - Fatigue [None]
  - Nausea [None]
  - Dizziness [None]
  - Insomnia [None]
  - Restlessness [None]
  - Anxiety [None]
  - Suicidal ideation [None]
  - Judgement impaired [None]
  - Irritability [None]
  - Feeling abnormal [None]

NARRATIVE: CASE EVENT DATE: 20230708
